FAERS Safety Report 21458854 (Version 2)
Quarter: 2022Q4

REPORT INFORMATION
  Report Type: Spontaneous
  Country: US (occurrence: US)
  Receive Date: 20221014
  Receipt Date: 20221019
  Transmission Date: 20230113
  Serious: Yes (Hospitalization, Other)
  Sender: FDA-Public Use
  Company Number: US-GLAXOSMITHKLINE-US2022GSK146698

PATIENT

DRUGS (6)
  1. LAMICTAL [Suspect]
     Active Substance: LAMOTRIGINE
     Indication: Major depression
     Dosage: 100 MG, QD
     Route: 048
     Dates: start: 202002
  2. LAMICTAL [Suspect]
     Active Substance: LAMOTRIGINE
     Indication: Suicidal ideation
     Dosage: 100 MG, BID
     Route: 048
     Dates: start: 20210909, end: 20210912
  3. LAMICTAL [Suspect]
     Active Substance: LAMOTRIGINE
     Dosage: 100 MG, QD
     Route: 048
     Dates: start: 20210909, end: 20210912
  4. AMOXICILLIN [Suspect]
     Active Substance: AMOXICILLIN
     Indication: Helicobacter infection
     Dosage: UNK
  5. SERTRALINE [Concomitant]
     Active Substance: SERTRALINE HYDROCHLORIDE
     Indication: Major depression
     Dosage: 50 MG, QD
     Dates: start: 202002
  6. SERTRALINE [Concomitant]
     Active Substance: SERTRALINE HYDROCHLORIDE
     Indication: Suicidal ideation

REACTIONS (23)
  - Lupus-like syndrome [Recovering/Resolving]
  - Abdominal pain [Recovered/Resolved]
  - Nausea [Recovering/Resolving]
  - Vomiting [Recovering/Resolving]
  - General physical health deterioration [Recovering/Resolving]
  - Weight decreased [Recovering/Resolving]
  - Mental status changes [Recovering/Resolving]
  - Myalgia [Recovering/Resolving]
  - Asthenia [Recovering/Resolving]
  - Gait disturbance [Recovering/Resolving]
  - Cytopenia [Recovered/Resolved]
  - Illness [Recovering/Resolving]
  - Ascites [Recovering/Resolving]
  - Liver disorder [Recovered/Resolved]
  - Hepatitis [Recovered/Resolved]
  - Oedematous pancreatitis [Recovered/Resolved]
  - Steatohepatitis [Recovered/Resolved]
  - Hepatic fibrosis [Recovered/Resolved]
  - Pleural effusion [Recovering/Resolving]
  - Pericarditis [Recovering/Resolving]
  - Ventricular hypokinesia [Recovering/Resolving]
  - Drug hypersensitivity [Unknown]
  - Rash [Unknown]
